FAERS Safety Report 7411481-3 (Version None)
Quarter: 2011Q2

REPORT INFORMATION
  Report Type: 
  Country: None (occurrence: None)
  Receive Date: 20110408
  Receipt Date: 20110408
  Transmission Date: 20111010
  Serious: Yes (Hospitalization)
  Sender: FDA-Public Use
  Company Number: None

PATIENT
  Age: 64 Year
  Sex: Male
  Weight: 134 kg

DRUGS (2)
  1. LISINOPRIL [Suspect]
     Indication: HYPERTENSION
     Dosage: 40 MG BID PO
     Route: 048
     Dates: start: 20100114, end: 20100723
  2. SULFAMETHOXAZOLE TRIMETHOPRIM [Suspect]
     Indication: PROSTATITIS
     Dosage: 1 TAB BID PO
     Route: 048
     Dates: start: 20100713

REACTIONS (2)
  - HYPERKALAEMIA [None]
  - PROSTATITIS [None]
